FAERS Safety Report 7231297-0 (Version None)
Quarter: 2011Q1

REPORT INFORMATION
  Report Type: 
  Country: None (occurrence: None)
  Receive Date: 20110118
  Receipt Date: 20110112
  Transmission Date: 20110831
  Serious: Yes (Other)
  Sender: FDA-Public Use
  Company Number: US-PFIZER INC-2011008006

PATIENT
  Sex: Female

DRUGS (1)
  1. LYRICA [Suspect]
     Indication: DIABETIC NEUROPATHY

REACTIONS (6)
  - OEDEMA PERIPHERAL [None]
  - BLOOD GLUCOSE INCREASED [None]
  - VISION BLURRED [None]
  - DIZZINESS [None]
  - SOMNOLENCE [None]
  - HEADACHE [None]
